FAERS Safety Report 6890224-6 (Version None)
Quarter: 2010Q3

REPORT INFORMATION
  Report Type: 
  Country: None (occurrence: None)
  Receive Date: 20100730
  Receipt Date: 20081008
  Transmission Date: 20110219
  Serious: No
  Sender: FDA-Public Use
  Company Number: US-PFIZER INC-2007106496

PATIENT
  Sex: Male
  Weight: 104.78 kg

DRUGS (8)
  1. LIPITOR [Suspect]
     Indication: BLOOD CHOLESTEROL INCREASED
     Route: 048
     Dates: start: 20070801
  2. LIPITOR [Suspect]
     Indication: HYPERLIPIDAEMIA
  3. NIASPAN [Concomitant]
  4. PLAVIX [Concomitant]
  5. CYMBALTA [Concomitant]
  6. DILTIAZEM [Concomitant]
  7. COZAAR [Concomitant]
  8. HYDROCHLOROTHIAZIDE [Concomitant]

REACTIONS (3)
  - HIGH DENSITY LIPOPROTEIN DECREASED [None]
  - LOW DENSITY LIPOPROTEIN INCREASED [None]
  - MYALGIA [None]
